FAERS Safety Report 24883676 (Version 6)
Quarter: 2025Q3

REPORT INFORMATION
  Report Type: Report from Study
  Country: KR (occurrence: KR)
  Receive Date: 20250124
  Receipt Date: 20250722
  Transmission Date: 20251021
  Serious: Yes (Death)
  Sender: MYLAN
  Company Number: KR-MYLANLABS-2025M1006572

PATIENT
  Age: 72 Year
  Sex: Female
  Weight: 39 kg

DRUGS (13)
  1. PRETOMANID [Suspect]
     Active Substance: PRETOMANID
     Indication: Tuberculosis
     Dosage: 200 MILLIGRAM, QD (ONCE DAILY)
     Dates: start: 20241206, end: 20250120
  2. BEDAQUILINE [Suspect]
     Active Substance: BEDAQUILINE
     Indication: Tuberculosis
     Dosage: 400 MILLIGRAM, QD (ONCE DAILY)
     Dates: start: 20241206, end: 20241219
  3. BEDAQUILINE [Suspect]
     Active Substance: BEDAQUILINE
     Dosage: 200 MILLIGRAM, 3XW (3 TIMES PER WEEK)
     Dates: start: 20241220, end: 20250120
  4. LINEZOLID [Suspect]
     Active Substance: LINEZOLID
     Indication: Tuberculosis
     Dosage: 600 MILLIGRAM, QD (ONCE DAILY)
     Dates: start: 20241206, end: 20250120
  5. TEGOPRAZAN [Suspect]
     Active Substance: TEGOPRAZAN
     Indication: Product used for unknown indication
     Dosage: 50 MILLIGRAM, QD
     Dates: start: 20250107, end: 20250120
  6. PYRIDOXINE [Concomitant]
     Active Substance: PYRIDOXINE
     Indication: Prophylaxis
     Dosage: 50 MILLIGRAM, QD
     Dates: start: 20241206, end: 20250120
  7. Neutoin [Concomitant]
     Indication: Dementia
     Dosage: 5 MILLIGRAM, QD
     Dates: start: 20241207, end: 20250120
  8. LAFUTIDINE [Concomitant]
     Active Substance: LAFUTIDINE
     Indication: Prophylaxis
     Dosage: 10 MILLIGRAM, BID
     Dates: start: 20241206, end: 20250120
  9. EZETIMIBE\ROSUVASTATIN [Concomitant]
     Active Substance: EZETIMIBE\ROSUVASTATIN
     Indication: Dyslipidaemia
     Dosage: 10 MILLIGRAM, QD
     Dates: start: 20241207, end: 20250120
  10. Synatura [Concomitant]
     Indication: Dyspnoea
     Dosage: 15 MILLILITER, TID
     Dates: start: 20241207, end: 20250120
  11. K contin continus [Concomitant]
     Dosage: 600 MILLIGRAM, QD
     Dates: start: 20241209, end: 20250120
  12. Godex [Concomitant]
     Dosage: 50 MILLIGRAM, BID
     Dates: start: 20241212, end: 20250120
  13. Moveloxin [Concomitant]
     Indication: Tuberculosis
     Dosage: 400 MILLIGRAM, QD
     Dates: start: 20241206, end: 20250120

REACTIONS (1)
  - Pneumothorax [Fatal]

NARRATIVE: CASE EVENT DATE: 20250120
